FAERS Safety Report 4312437-X (Version None)
Quarter: 2004Q1

REPORT INFORMATION
  Report Type: 
  Country: None (occurrence: None)
  Receive Date: 20040305
  Receipt Date: 20040212
  Transmission Date: 20041129
  Serious: Yes (Life-Threatening)
  Sender: FDA-Public Use
  Company Number: JP-ROCHE-358865

PATIENT
  Age: 25 Year
  Sex: Male
  Weight: 55 kg

DRUGS (2)
  1. TAMIFLU [Suspect]
     Route: 048
     Dates: start: 20040130, end: 20040131
  2. ACETAMINOPHEN [Concomitant]
     Indication: PROPHYLAXIS
     Dosage: TAKEN AS REQUIRED.
     Route: 048
     Dates: start: 20040130, end: 20040131

REACTIONS (8)
  - ANAPHYLACTOID REACTION [None]
  - DYSPNOEA [None]
  - ECZEMA [None]
  - FACE OEDEMA [None]
  - GENERALISED ERYTHEMA [None]
  - OEDEMA [None]
  - RALES [None]
  - STRIDOR [None]
